FAERS Safety Report 5737515-X (Version None)
Quarter: 2008Q2

REPORT INFORMATION
  Report Type: 
  Country: None (occurrence: None)
  Receive Date: 20080514
  Receipt Date: 20080505
  Transmission Date: 20081010
  Serious: Yes (Other)
  Sender: FDA-Public Use
  Company Number: DK-ASTRAZENECA-2008SE01627

PATIENT
  Age: 11986 Day
  Sex: Female

DRUGS (7)
  1. SEROQUEL [Suspect]
     Indication: ANXIETY
     Route: 048
  2. SEROQUEL [Interacting]
     Indication: DISCOMFORT
     Route: 048
  3. SEROQUEL [Interacting]
     Route: 048
     Dates: start: 20071205
  4. SEROQUEL [Interacting]
     Route: 048
     Dates: start: 20071205
  5. RITALIN TAB [Interacting]
     Indication: ATTENTION DEFICIT/HYPERACTIVITY DISORDER
     Dates: start: 20071016
  6. RITALIN TAB [Interacting]
     Route: 048
     Dates: start: 20071205
  7. DESOGESTREL AND ETHINYL ESTRADIOL [Interacting]
     Indication: CONTRACEPTION
     Route: 048

REACTIONS (8)
  - ABORTION SPONTANEOUS [None]
  - ALOPECIA [None]
  - DRUG EXPOSURE DURING PREGNANCY [None]
  - DRUG INTERACTION [None]
  - DRY MOUTH [None]
  - NAUSEA [None]
  - PREGNANCY ON ORAL CONTRACEPTIVE [None]
  - VISUAL DISTURBANCE [None]
